FAERS Safety Report 7851271-0 (Version None)
Quarter: 2011Q4

REPORT INFORMATION
  Report Type: 
  Country: None (occurrence: None)
  Receive Date: 20111026
  Receipt Date: 20110906
  Transmission Date: 20120403
  Serious: No
  Sender: FDA-Public Use
  Company Number: US-BAYER-2011-089249

PATIENT
  Sex: Female

DRUGS (3)
  1. ALEVE (CAPLET) [Suspect]
     Dosage: 2 DF, UNK
     Route: 048
  2. TYLENOL 1 [Concomitant]
     Dosage: 2 DF, UNK
  3. COUGH AND COLD PREPARATIONS [Concomitant]

REACTIONS (1)
  - DRUG INEFFECTIVE [None]
